FAERS Safety Report 4464108-7 (Version None)
Quarter: 2004Q4

REPORT INFORMATION
  Report Type: 
  Country: None (occurrence: None)
  Receive Date: 20041001
  Receipt Date: 20040920
  Transmission Date: 20050328
  Serious: Yes (Hospitalization, Disabling, Other)
  Sender: FDA-Public Use
  Company Number: US-MERCK-0409USA01603

PATIENT
  Sex: Male

DRUGS (6)
  1. VICODIN [Concomitant]
     Route: 065
  2. CELEBREX [Concomitant]
     Route: 065
  3. LASIX [Concomitant]
     Route: 065
  4. NAPROSYN [Concomitant]
     Route: 065
  5. VIAGRA [Concomitant]
     Route: 065
  6. ZOCOR [Suspect]
     Indication: BLOOD CHOLESTEROL INCREASED
     Route: 048
     Dates: end: 20031201

REACTIONS (6)
  - ASTHENIA [None]
  - CARDIAC DISORDER [None]
  - CARDIAC FAILURE CONGESTIVE [None]
  - CHEST WALL PAIN [None]
  - DEVICE INEFFECTIVE [None]
  - MYALGIA [None]
